FAERS Safety Report 6988008-3 (Version None)
Quarter: 2010Q3

REPORT INFORMATION
  Report Type: 
  Country: None (occurrence: None)
  Receive Date: 20100916
  Receipt Date: 20100909
  Transmission Date: 20110219
  Serious: Yes (Hospitalization)
  Sender: FDA-Public Use
  Company Number: US-SANOFI-AVENTIS-2010SA054767

PATIENT
  Age: 76 Year
  Sex: Male

DRUGS (6)
  1. JEVTANA KIT [Suspect]
     Indication: PROSTATE CANCER METASTATIC
     Route: 041
     Dates: start: 20100810, end: 20100810
  2. JEVTANA KIT [Suspect]
     Route: 041
     Dates: start: 20100909, end: 20100909
  3. DECADRON [Concomitant]
     Indication: PREMEDICATION
     Route: 065
     Dates: start: 20100810
  4. BENADRYL [Concomitant]
     Indication: PREMEDICATION
     Route: 065
     Dates: start: 20100810
  5. PEPCID [Concomitant]
     Indication: PREMEDICATION
     Route: 065
     Dates: start: 20100810
  6. LUNESTA [Concomitant]
     Indication: PREMEDICATION
     Route: 065
     Dates: start: 20100810

REACTIONS (1)
  - HAEMOPTYSIS [None]
